FAERS Safety Report 24095711 (Version 1)
Quarter: 2024Q3

REPORT INFORMATION
  Report Type: Spontaneous
  Country: FR (occurrence: FR)
  Receive Date: 20240716
  Receipt Date: 20240716
  Transmission Date: 20241016
  Serious: Yes (Death, Other)
  Sender: AUROBINDO
  Company Number: FR-AFSSAPS-MP2024001086

PATIENT
  Age: 89 Year
  Sex: Female
  Weight: 50 kg

DRUGS (1)
  1. DIGOXIN [Suspect]
     Active Substance: DIGOXIN
     Indication: Product used for unknown indication
     Dosage: UNK
     Route: 048
     Dates: start: 20240605, end: 20240605

REACTIONS (5)
  - Coma [Fatal]
  - Vomiting [Fatal]
  - Hypertension [Fatal]
  - Sinus bradycardia [Fatal]
  - Abdominal pain [Fatal]

NARRATIVE: CASE EVENT DATE: 20240605
